FAERS Safety Report 7135311-2 (Version None)
Quarter: 2010Q4

REPORT INFORMATION
  Report Type: 
  Country: None (occurrence: None)
  Receive Date: 20101203
  Receipt Date: 20101125
  Transmission Date: 20110411
  Serious: Yes (Hospitalization)
  Sender: FDA-Public Use
  Company Number: B0686181A

PATIENT
  Sex: Female
  Weight: 53 kg

DRUGS (3)
  1. TYKERB [Suspect]
     Indication: GASTRIC CANCER
     Route: 048
     Dates: start: 20080512
  2. AROMASIN [Concomitant]
     Indication: ADJUVANT THERAPY
     Dosage: 25MG PER DAY
     Route: 048
     Dates: start: 20090511
  3. TACALCITOL [Concomitant]
     Indication: OSTEOPOROSIS
     Dosage: 35MG PER DAY
     Route: 061
     Dates: start: 20090501

REACTIONS (4)
  - ATRIOVENTRICULAR BLOCK [None]
  - ATRIOVENTRICULAR BLOCK COMPLETE [None]
  - HEAD INJURY [None]
  - LOSS OF CONSCIOUSNESS [None]
